FAERS Safety Report 7533696-6 (Version None)
Quarter: 2011Q2

REPORT INFORMATION
  Report Type: 
  Country: None (occurrence: None)
  Receive Date: 20110608
  Receipt Date: 20110527
  Transmission Date: 20111010
  Serious: Yes (Hospitalization, Other)
  Sender: FDA-Public Use
  Company Number: US-UCBSA-028521

PATIENT
  Sex: Female
  Weight: 76 kg

DRUGS (11)
  1. ALPRAZOLAM [Concomitant]
     Indication: ANXIETY
     Dosage: UP TO 3 AS NEEDED
     Route: 048
     Dates: start: 20090101
  2. CIMZIA [Suspect]
     Route: 058
     Dates: start: 20100201, end: 20101101
  3. NORCO [Concomitant]
     Indication: ABDOMINAL PAIN
     Dosage: AS NEEDED
     Route: 048
     Dates: start: 20080101
  4. PROVENTIL [Concomitant]
     Indication: ASTHMA
     Dosage: ROUTE: INHALED AS NEEDED
     Dates: start: 20080101
  5. ZOFRAN [Concomitant]
     Indication: PROPHYLAXIS OF NAUSEA AND VOMITING
     Dosage: AS NEEDED
     Route: 048
     Dates: start: 20080101
  6. CIMZIA [Suspect]
     Indication: CROHN'S DISEASE
     Route: 058
     Dates: start: 20090401
  7. CIMZIA [Suspect]
     Route: 058
  8. CELEXA [Concomitant]
     Indication: ANXIETY
     Route: 048
     Dates: start: 20100101
  9. PROVENTIL [Concomitant]
     Indication: SEASONAL ALLERGY
     Dosage: ROUTE: INHALED AS NEEDED
     Dates: start: 20080101
  10. CELEXA [Concomitant]
     Indication: DEPRESSION
     Route: 048
     Dates: start: 20100101
  11. ALPRAZOLAM [Concomitant]
     Indication: SLEEP DISORDER
     Dosage: UP TO 3 AS NEEDED
     Route: 048
     Dates: start: 20090101

REACTIONS (2)
  - OEDEMA PERIPHERAL [None]
  - PANCREATITIS [None]
